FAERS Safety Report 4750438-8 (Version None)
Quarter: 2005Q3

REPORT INFORMATION
  Report Type: 
  Country: None (occurrence: None)
  Receive Date: 20050823
  Receipt Date: 20050812
  Transmission Date: 20060218
  Serious: Yes (Other)
  Sender: FDA-Public Use
  Company Number: PHEH2005US09002

PATIENT
  Age: 55 Year
  Sex: Male

DRUGS (2)
  1. ZOMETA [Suspect]
     Indication: MULTIPLE MYELOMA
     Dosage: 4 MG, Q 1 MONTH
     Route: 042
     Dates: start: 20050601
  2. ZOMETA [Suspect]
     Dosage: 4 MG, Q 1 MONTH
     Route: 042
     Dates: start: 20030101, end: 20050301

REACTIONS (4)
  - BONE DEBRIDEMENT [None]
  - BONE DISORDER [None]
  - FRACTURE [None]
  - PAIN IN JAW [None]
